FAERS Safety Report 16276575 (Version 1)
Quarter: 2019Q2

REPORT INFORMATION
  Report Type: Spontaneous
  Country: US (occurrence: US)
  Receive Date: 20190505
  Receipt Date: 20190505
  Transmission Date: 20190711
  Serious: Yes (Other)
  Sender: FDA-Public Use
  Company Number: None

PATIENT
  Age: 86 Year
  Sex: Female
  Weight: 54 kg

DRUGS (1)
  1. PRED PHOS-GATI-BROM [Suspect]
     Active Substance: BROMFENAC\GATIFLOXACIN\PREDNISOLONE SODIUM PHOSPHATE
     Indication: CATARACT OPERATION
     Dosage: ?          QUANTITY:1 DROP(S);?
     Route: 047
     Dates: start: 20190303, end: 20190303

REACTIONS (6)
  - Presyncope [None]
  - Heart rate increased [None]
  - Blood pressure increased [None]
  - Tremor [None]
  - Asthenia [None]
  - Drug hypersensitivity [None]

NARRATIVE: CASE EVENT DATE: 20190303
